FAERS Safety Report 11876665 (Version 2)
Quarter: 2016Q1

REPORT INFORMATION
  Report Type: Spontaneous
  Country: JP (occurrence: JP)
  Receive Date: 20151229
  Receipt Date: 20160209
  Transmission Date: 20160526
  Serious: Yes (Hospitalization, Other)
  Sender: FDA-Public Use
  Company Number: JP-009507513-1512JPN013052

PATIENT
  Age: 64 Year
  Sex: Male

DRUGS (10)
  1. ENBREL [Concomitant]
     Active Substance: ETANERCEPT
     Dosage: DAILY DOSAGE UNKNOWN
     Route: 058
  2. SOVALDI [Suspect]
     Active Substance: SOFOSBUVIR
     Dosage: DAILY DOSAGE UNKNOWN
     Route: 048
     Dates: start: 20160106
  3. LEUCOVORIN. [Concomitant]
     Active Substance: LEUCOVORIN
     Dosage: DAILY DOSAGE UNKNOWN; FORMULATION REPORTED AS XXX
     Route: 065
  4. METHOTREXATE [Concomitant]
     Active Substance: METHOTREXATE
     Dosage: DAILY DOSAGE UNKNOWN; FORMULATION REPORTED AS XXX
     Route: 065
  5. ADOFEED [Concomitant]
     Active Substance: FLURBIPROFEN
     Dosage: DAILY DOSAGE UNKNOWN; FORMULATION REPORTED AS EXT
     Route: 061
  6. NAPAGELN [Concomitant]
     Dosage: DAILY DOSAGE UNKNOWN
     Route: 061
  7. REBETOL [Suspect]
     Active Substance: RIBAVIRIN
     Dosage: DAILY DOSAGE UNKNOWN
     Route: 048
     Dates: start: 20160106
  8. PREDNISOLONE. [Concomitant]
     Active Substance: PREDNISOLONE
     Dosage: DAILY DOSAGE UNKNOWN; FORLUMATION REPORTED AS XXX
     Route: 065
  9. REBETOL [Suspect]
     Active Substance: RIBAVIRIN
     Dosage: DIVIDED DOSE FREQUENCY UNKNOWN
     Route: 048
     Dates: start: 20151215, end: 20151222
  10. SOVALDI [Suspect]
     Active Substance: SOFOSBUVIR
     Dosage: DIVIDED DOSE FREQUENCY UNKNOWN
     Route: 048
     Dates: start: 20151215, end: 20151222

REACTIONS (3)
  - Blood creatinine increased [Recovered/Resolved]
  - Arthralgia [Recovered/Resolved]
  - Blood uric acid increased [Recovered/Resolved]

NARRATIVE: CASE EVENT DATE: 20151219
